FAERS Safety Report 12759634 (Version 1)
Quarter: 2016Q3

REPORT INFORMATION
  Report Type: Report from Study
  Country: CA (occurrence: CA)
  Receive Date: 20160919
  Receipt Date: 20160919
  Transmission Date: 20161109
  Serious: Yes (Hospitalization, Other)
  Sender: FDA-Public Use
  Company Number: CA-JNJFOC-20151101271

PATIENT
  Age: 70 Year
  Sex: Female
  Weight: 80 kg

DRUGS (2)
  1. REMICADE [Suspect]
     Active Substance: INFLIXIMAB
     Indication: RHEUMATOID ARTHRITIS
     Dosage: 76TH INFUSION
     Route: 042
  2. REMICADE [Suspect]
     Active Substance: INFLIXIMAB
     Indication: RHEUMATOID ARTHRITIS
     Route: 042

REACTIONS (5)
  - Synovial cyst [Recovering/Resolving]
  - Breast cancer [Not Recovered/Not Resolved]
  - Postoperative wound infection [Recovering/Resolving]
  - Arthralgia [Not Recovered/Not Resolved]
  - Breast mass [Recovering/Resolving]

NARRATIVE: CASE EVENT DATE: 20151009
